FAERS Safety Report 23123120 (Version 1)
Quarter: 2023Q4

REPORT INFORMATION
  Report Type: Report from Study
  Country: US (occurrence: US)
  Receive Date: 20231030
  Receipt Date: 20231030
  Transmission Date: 20240110
  Serious: Yes (Other)
  Sender: FDA-Public Use
  Company Number: US-GILEAD-2023-0648767

PATIENT
  Age: 83 Year
  Sex: Female

DRUGS (1)
  1. AZTREONAM LYSINE [Suspect]
     Active Substance: AZTREONAM LYSINE
     Indication: Bronchiectasis
     Dosage: 75 MG, TID (28 DAYS ON AND 28 DAYS OFF)
     Route: 055
     Dates: start: 202207

REACTIONS (2)
  - Pneumonia staphylococcal [Not Recovered/Not Resolved]
  - Off label use [Not Recovered/Not Resolved]
